FAERS Safety Report 14553536 (Version 2)
Quarter: 2018Q1

REPORT INFORMATION
  Report Type: Spontaneous
  Country: JP (occurrence: JP)
  Receive Date: 20180220
  Receipt Date: 20180227
  Transmission Date: 20180509
  Serious: Yes (Other)
  Sender: FDA-Public Use
  Company Number: JP-PFIZER INC-2018066151

PATIENT
  Age: 6 Decade
  Sex: Female

DRUGS (3)
  1. PAZOPANIB HYDROCHLORIDE [Suspect]
     Active Substance: PAZOPANIB HYDROCHLORIDE
     Indication: RENAL CANCER
  2. EVEROLIMUS. [Suspect]
     Active Substance: EVEROLIMUS
     Indication: RENAL CANCER
  3. AXITINIB [Suspect]
     Active Substance: AXITINIB
     Indication: RENAL CANCER
     Dosage: UNK

REACTIONS (1)
  - Interstitial lung disease [Unknown]
